FAERS Safety Report 8433616-6 (Version None)
Quarter: 2012Q2

REPORT INFORMATION
  Report Type: 
  Country: None (occurrence: None)
  Receive Date: 20120613
  Receipt Date: 20120602
  Transmission Date: 20120825
  Serious: Yes (Death, Other)
  Sender: FDA-Public Use
  Company Number: NO-ALEXION PHARMACEUTICALS INC.-A201200611

PATIENT
  Sex: Female

DRUGS (16)
  1. PANTOPRAZOLE [Concomitant]
     Dosage: UNK
     Dates: start: 20120307
  2. ETALPHA [Concomitant]
     Dosage: UNK
     Dates: start: 20120307
  3. ACETAMINOPHEN [Concomitant]
     Dosage: UNK
     Dates: start: 20120307
  4. PENICILLIN [Concomitant]
     Dosage: UNK
     Dates: start: 20120307
  5. DIAZEPAM [Concomitant]
     Dosage: 2.5 MG, UNK
     Dates: start: 20120313, end: 20120313
  6. FUROSEMIDE [Concomitant]
     Dosage: UNK
     Dates: start: 20120307
  7. NITROGLYCERIN [Concomitant]
     Dosage: UNK
     Dates: start: 20120307
  8. SINGULAIR [Concomitant]
     Dosage: UNK
     Dates: start: 20120307
  9. ONDANSETRON HCL [Concomitant]
     Dosage: UNK
     Dates: start: 20120307
  10. SANDOSTATIN [Concomitant]
     Dosage: UNK
     Dates: start: 20120307
  11. NOZINAN [Concomitant]
     Dosage: UNK
     Dates: start: 20120307
  12. ENALAPRIL MALEATE [Concomitant]
     Dosage: UNK
     Dates: start: 20120307
  13. TRANDATE [Concomitant]
     Dosage: UNK
     Dates: start: 20120307
  14. PREDNISOLONE [Concomitant]
     Dosage: UNK
     Dates: start: 20120307
  15. PINEX [Concomitant]
     Dosage: UNK
     Dates: start: 20120307
  16. SOLIRIS [Suspect]
     Indication: HAEMOLYTIC URAEMIC SYNDROME
     Dosage: 900 MG, UNK
     Route: 042
     Dates: start: 20120307, end: 20120307

REACTIONS (4)
  - CONVULSION [None]
  - PLATELET COUNT DECREASED [None]
  - HAEMOLYSIS [None]
  - HYPERTENSION [None]
